FAERS Safety Report 7674141-X (Version None)
Quarter: 2011Q3

REPORT INFORMATION
  Report Type: 
  Country: None (occurrence: None)
  Receive Date: 20110810
  Receipt Date: 20110727
  Transmission Date: 20111222
  Serious: Yes (Other)
  Sender: FDA-Public Use
  Company Number: US-ELI_LILLY_AND_COMPANY-US201006006610

PATIENT
  Sex: Female

DRUGS (2)
  1. FORTEO [Suspect]
     Indication: OSTEOPOROSIS
     Dosage: 20 UG, DAILY (1/D)
     Route: 065
     Dates: start: 20100501
  2. FORTEO [Suspect]
     Dosage: 20 UG, DAILY (1/D)
     Route: 065

REACTIONS (7)
  - WEIGHT INCREASED [None]
  - OROPHARYNGEAL PAIN [None]
  - HERPES ZOSTER [None]
  - ARTHRITIS [None]
  - DYSPHONIA [None]
  - FOOT OPERATION [None]
  - INJECTION SITE ERYTHEMA [None]
